FAERS Safety Report 10749922 (Version 1)
Quarter: 2015Q1

REPORT INFORMATION
  Report Type: Spontaneous
  Country: US (occurrence: US)
  Receive Date: 20150129
  Receipt Date: 20150129
  Transmission Date: 20150721
  Serious: No
  Sender: FDA-Public Use
  Company Number: US-GALDERMA-US14002374

PATIENT
  Sex: Female

DRUGS (1)
  1. DESOWEN [Suspect]
     Active Substance: DESONIDE
     Dosage: 0.05%
     Route: 061

REACTIONS (1)
  - Drug ineffective [Unknown]
